FAERS Safety Report 22242929 (Version 1)
Quarter: 2023Q2

REPORT INFORMATION
  Report Type: Spontaneous
  Country: US (occurrence: US)
  Receive Date: 20230424
  Receipt Date: 20230424
  Transmission Date: 20230721
  Serious: Yes (Hospitalization, Other)
  Sender: FDA-Public Use
  Company Number: US-SA-2023SA124002

PATIENT
  Age: 81 Year
  Sex: Male

DRUGS (3)
  1. CLOPIDOGREL BISULFATE [Suspect]
     Active Substance: CLOPIDOGREL BISULFATE
     Indication: Antiplatelet therapy
     Dosage: UNK
  2. ASPIRIN [Suspect]
     Active Substance: ASPIRIN
     Indication: Antiplatelet therapy
     Dosage: UNK
  3. OXYGEN [Concomitant]
     Active Substance: OXYGEN
     Indication: Chronic obstructive pulmonary disease
     Dosage: 3 L

REACTIONS (6)
  - Aortic aneurysm [Recovered/Resolved]
  - Haemorrhage [Recovered/Resolved]
  - Diarrhoea [Recovered/Resolved]
  - Abdominal mass [Recovered/Resolved]
  - Thrombosis [Recovered/Resolved]
  - Abdominal discomfort [Recovered/Resolved]
